FAERS Safety Report 17116807 (Version 2)
Quarter: 2019Q4

REPORT INFORMATION
  Report Type: Spontaneous
  Country: JP (occurrence: JP)
  Receive Date: 20191205
  Receipt Date: 20191219
  Transmission Date: 20200122
  Serious: Yes (Other)
  Sender: FDA-Public Use
  Company Number: JP-BAYER-2019-212838

PATIENT
  Age: 85 Year
  Sex: Male

DRUGS (1)
  1. XOFIGO [Suspect]
     Active Substance: RADIUM RA-223 DICHLORIDE
     Indication: HORMONE-REFRACTORY PROSTATE CANCER
     Dosage: ADMINISTERED FIVE TIMES
     Dates: start: 20170419, end: 20170907

REACTIONS (2)
  - Metastases to liver [Unknown]
  - Hormone-refractory prostate cancer [None]

NARRATIVE: CASE EVENT DATE: 20170831
